FAERS Safety Report 20348600 (Version 1)
Quarter: 2022Q1

REPORT INFORMATION
  Report Type: Spontaneous
  Country: GB (occurrence: GB)
  Receive Date: 20220119
  Receipt Date: 20220119
  Transmission Date: 20220424
  Serious: Yes (Other)
  Sender: FDA-Public Use
  Company Number: GB-BAYER-2021A259512

PATIENT
  Sex: Female

DRUGS (3)
  1. RIVAROXABAN [Suspect]
     Active Substance: RIVAROXABAN
     Indication: Atrial fibrillation
     Dosage: 20 MG, QD,?XARELTO 20 MG
     Route: 048
  2. RIVAROXABAN [Suspect]
     Active Substance: RIVAROXABAN
     Indication: Tachycardia
     Dosage: XARELTO 20 MG
     Route: 048
  3. RIVAROXABAN [Suspect]
     Active Substance: RIVAROXABAN
     Dosage: XARELTO 1 MG/ML
     Route: 048

REACTIONS (4)
  - Tumour inflammation [Unknown]
  - Vomiting [Unknown]
  - Dysphagia [Unknown]
  - Off label use [Unknown]
